FAERS Safety Report 7711958-7 (Version None)
Quarter: 2011Q3

REPORT INFORMATION
  Report Type: 
  Country: None (occurrence: None)
  Receive Date: 20110823
  Receipt Date: 20110815
  Transmission Date: 20111222
  Serious: Yes (Hospitalization)
  Sender: FDA-Public Use
  Company Number: 11-000918

PATIENT
  Age: 88 Year
  Sex: Female
  Weight: 49.9 kg

DRUGS (14)
  1. MACRODANTIN [Suspect]
     Indication: URINARY TRACT INFECTION
     Dates: start: 20110513, end: 20110514
  2. DILTIAZEM [Concomitant]
  3. OMEPRAZOLE [Concomitant]
  4. PHENAZOPYRIDINE HCL TAB [Suspect]
     Indication: URINARY TRACT INFECTION
     Dates: start: 20110513
  5. POTASSIUM CHLORIDE [Concomitant]
  6. ATENOLOL [Concomitant]
  7. DIGOXIN [Concomitant]
  8. WARFARIN SODIUM [Suspect]
     Indication: ATRIAL FIBRILLATION
     Dosage: 7.5 MG, QD, ORAL, 2.5 MG, QD, ORAL, 5 MG, THREE TIMES A WEEK, ORAL, 7.5 MG, FOUR TIMES A WEEK, ORAL
     Route: 048
     Dates: start: 20110421, end: 20110512
  9. WARFARIN SODIUM [Suspect]
     Indication: ATRIAL FIBRILLATION
     Dosage: 7.5 MG, QD, ORAL, 2.5 MG, QD, ORAL, 5 MG, THREE TIMES A WEEK, ORAL, 7.5 MG, FOUR TIMES A WEEK, ORAL
     Route: 048
     Dates: start: 20030101, end: 20110421
  10. WARFARIN SODIUM [Suspect]
     Indication: ATRIAL FIBRILLATION
     Dosage: 7.5 MG, QD, ORAL, 2.5 MG, QD, ORAL, 5 MG, THREE TIMES A WEEK, ORAL, 7.5 MG, FOUR TIMES A WEEK, ORAL
     Route: 048
     Dates: start: 20110520, end: 20110523
  11. WARFARIN SODIUM [Suspect]
     Indication: ATRIAL FIBRILLATION
     Dosage: 7.5 MG, QD, ORAL, 2.5 MG, QD, ORAL, 5 MG, THREE TIMES A WEEK, ORAL, 7.5 MG, FOUR TIMES A WEEK, ORAL
     Route: 048
     Dates: start: 20110520
  12. WARFARIN SODIUM [Suspect]
     Indication: ATRIAL FIBRILLATION
     Dosage: 7.5 MG, QD, ORAL, 2.5 MG, QD, ORAL, 5 MG, THREE TIMES A WEEK, ORAL, 7.5 MG, FOUR TIMES A WEEK, ORAL
     Route: 048
     Dates: start: 20110520
  13. SEPTRA DS [Concomitant]
  14. FUROSEMIDE [Concomitant]

REACTIONS (22)
  - BLOOD URINE PRESENT [None]
  - DYSPEPSIA [None]
  - PRESYNCOPE [None]
  - VOMITING [None]
  - HYPONATRAEMIA [None]
  - SKIN DISCOLOURATION [None]
  - PROTHROMBIN TIME PROLONGED [None]
  - GAIT DISTURBANCE [None]
  - ARRHYTHMIA [None]
  - HAEMATURIA [None]
  - ABDOMINAL DISCOMFORT [None]
  - DECREASED APPETITE [None]
  - ASTHENIA [None]
  - ACTIVATED PARTIAL THROMBOPLASTIN TIME PROLONGED [None]
  - ATROPHY [None]
  - INTERNATIONAL NORMALISED RATIO FLUCTUATION [None]
  - STREPTOCOCCAL URINARY TRACT INFECTION [None]
  - ECCHYMOSIS [None]
  - OVERDOSE [None]
  - NAUSEA [None]
  - WEIGHT DECREASED [None]
  - ANAEMIA [None]
